FAERS Safety Report 6223396-7 (Version None)
Quarter: 2009Q2

REPORT INFORMATION
  Report Type: 
  Country: None (occurrence: None)
  Receive Date: 20090611
  Receipt Date: 20090602
  Transmission Date: 20091009
  Serious: Yes (Hospitalization, Other)
  Sender: FDA-Public Use
  Company Number: JP-ABBOTT-09P-087-0578310-00

PATIENT
  Age: 71 Year
  Sex: Male

DRUGS (2)
  1. LEUPLIN DEPOT [Suspect]
     Indication: PROSTATE CANCER
     Route: 058
  2. CASODEX [Suspect]
     Indication: PROSTATE CANCER
     Route: 048

REACTIONS (1)
  - BREAST CANCER MALE [None]
